FAERS Safety Report 8437276-X (Version None)
Quarter: 2012Q2

REPORT INFORMATION
  Report Type: 
  Country: None (occurrence: None)
  Receive Date: 20120614
  Receipt Date: 20120612
  Transmission Date: 20120825
  Serious: Yes (Death, Hospitalization, Other)
  Sender: FDA-Public Use
  Company Number: VE-PFIZER INC-2012134938

PATIENT
  Age: 69 Year
  Sex: Male

DRUGS (4)
  1. LIPITOR [Suspect]
     Indication: HYPERCHOLESTEROLAEMIA
     Dosage: 40 MG, 1X/DAY
     Route: 048
     Dates: start: 20060101
  2. NORVASC [Concomitant]
     Dosage: UNK
     Route: 048
     Dates: start: 20060101
  3. GLUCOFAGE [Concomitant]
     Dosage: UNK
     Route: 048
     Dates: start: 20060101
  4. PLAVIX [Concomitant]
     Dosage: 75 MG, UNK
     Route: 048
     Dates: start: 20060101

REACTIONS (4)
  - RESPIRATORY ARREST [None]
  - HYPERTENSIVE CRISIS [None]
  - PULMONARY OEDEMA [None]
  - MYOCARDIAL INFARCTION [None]
